FAERS Safety Report 16652696 (Version 3)
Quarter: 2019Q4

REPORT INFORMATION
  Report Type: Report from Study
  Country: CA (occurrence: CA)
  Receive Date: 20190731
  Receipt Date: 20191105
  Transmission Date: 20200122
  Serious: Yes (Death, Hospitalization)
  Sender: FDA-Public Use
  Company Number: CA-JNJFOC-20190737708

PATIENT
  Age: 86 Year
  Sex: Female
  Weight: 54.43 kg

DRUGS (1)
  1. REMICADE [Suspect]
     Active Substance: INFLIXIMAB
     Indication: RHEUMATOID ARTHRITIS
     Route: 042
     Dates: start: 20190606

REACTIONS (2)
  - B-cell lymphoma [Fatal]
  - Intervertebral disc disorder [Unknown]

NARRATIVE: CASE EVENT DATE: 201906
